FAERS Safety Report 7291578-1 (Version None)
Quarter: 2011Q1

REPORT INFORMATION
  Report Type: 
  Country: None (occurrence: None)
  Receive Date: 20110214
  Receipt Date: 20110204
  Transmission Date: 20110831
  Serious: Yes (Other)
  Sender: FDA-Public Use
  Company Number: PHHY2011BR09241

PATIENT
  Sex: Male

DRUGS (1)
  1. TASIGNA [Suspect]

REACTIONS (1)
  - PARALYSIS [None]
